FAERS Safety Report 5304380-4 (Version None)
Quarter: 2007Q2

REPORT INFORMATION
  Report Type: 
  Country: None (occurrence: None)
  Receive Date: 20070419
  Receipt Date: 20070419
  Transmission Date: 20071010
  Serious: Yes (Other)
  Sender: FDA-Public Use
  Company Number: None

PATIENT
  Age: 65 Year
  Sex: Female
  Weight: 66.6788 kg

DRUGS (1)
  1. ZICAM NASAL SPRAY [Suspect]
     Dates: start: 20070301, end: 20070301

REACTIONS (2)
  - AGEUSIA [None]
  - ANOSMIA [None]
